FAERS Safety Report 5118570-7 (Version None)
Quarter: 2006Q3

REPORT INFORMATION
  Report Type: 
  Country: None (occurrence: None)
  Receive Date: 20060927
  Receipt Date: 20060919
  Transmission Date: 20061208
  Serious: Yes (Other)
  Sender: FDA-Public Use
  Company Number: GXKR2006GB05772

PATIENT
  Age: 64 Year
  Sex: Female

DRUGS (3)
  1. TRAMADOL (NGX) (TRAMADOL) [Suspect]
     Indication: PAIN
     Dosage: 50 MG, BQD, ORAL
     Route: 048
     Dates: start: 20050815, end: 20060901
  2. DICLOFENAC (DIFLOFENAC) [Concomitant]
  3. LANSOPRAZOLE [Concomitant]

REACTIONS (3)
  - MYOCLONUS [None]
  - PANIC REACTION [None]
  - POOR QUALITY SLEEP [None]
